FAERS Safety Report 12958904 (Version 2)
Quarter: 2016Q4

REPORT INFORMATION
  Report Type: Spontaneous
  Country: US (occurrence: US)
  Receive Date: 20161121
  Receipt Date: 20161128
  Transmission Date: 20170207
  Serious: Yes (Other)
  Sender: FDA-Public Use
  Company Number: US-PROCTER_AND_GAMBLE-GS16138232

PATIENT
  Sex: Male

DRUGS (2)
  1. OTHER MEDICATION THAT HE HAS TO SWALLOW DAILY [Concomitant]
  2. DAYQUIL LIQUICAP (ACETAMINOPHEN\DEXTROMETHORPHAN HYDROBROMIDE\PHENYLEPHRINE HYDROCHLORIDE) [Suspect]
     Active Substance: ACETAMINOPHEN\DEXTROMETHORPHAN HYDROBROMIDE\PHENYLEPHRINE HYDROCHLORIDE
     Dosage: THE CAPSULE LODGED IN HIS THROAT
     Route: 048
     Dates: start: 20161110, end: 20161110

REACTIONS (1)
  - Foreign body [Recovered/Resolved]

NARRATIVE: CASE EVENT DATE: 20161110
